FAERS Safety Report 4843047-3 (Version None)
Quarter: 2005Q4

REPORT INFORMATION
  Report Type: 
  Country: None (occurrence: None)
  Receive Date: 20051130
  Receipt Date: 20051117
  Transmission Date: 20060501
  Serious: Yes (Death, Hospitalization, Other)
  Sender: FDA-Public Use
  Company Number: 12750

PATIENT
  Age: 74 Year
  Sex: Male

DRUGS (6)
  1. AMIODARONE [Suspect]
     Indication: ATRIAL FIBRILLATION
     Dosage: 200 MG DAILY PO
     Route: 048
     Dates: start: 20031001, end: 20050801
  2. SOTALOL [Concomitant]
  3. CO-CODAMOL [Concomitant]
  4. WARFARIN SODIUM [Concomitant]
  5. GTN-S [Concomitant]
  6. SIMVASTATIN [Concomitant]

REACTIONS (4)
  - DIFFUSE ALVEOLAR DAMAGE [None]
  - PNEUMONIA PRIMARY ATYPICAL [None]
  - PULMONARY FIBROSIS [None]
  - RESPIRATORY ARREST [None]
